FAERS Safety Report 9419387 (Version 3)
Quarter: 2015Q1

REPORT INFORMATION
  Report Type: Spontaneous
  Country: US (occurrence: US)
  Receive Date: 20130725
  Receipt Date: 20150129
  Transmission Date: 20150721
  Serious: Yes (Death, Hospitalization, Disabling, Other)
  Sender: FDA-Public Use
  Company Number: US-009507513-1307USA013466

PATIENT
  Sex: Female
  Weight: 107.9 kg

DRUGS (3)
  1. ALENDRONATE SODIUM. [Suspect]
     Active Substance: ALENDRONATE SODIUM
     Indication: OSTEOPENIA
     Dosage: 70 MG, UNK
     Route: 048
     Dates: start: 20080422, end: 20110710
  2. FOSAMAX [Suspect]
     Active Substance: ALENDRONATE SODIUM
     Indication: OSTEOPENIA
     Dosage: 70 MG, QW
     Route: 048
     Dates: start: 20040622
  3. VITAMINS (UNSPECIFIED) [Concomitant]
     Active Substance: VITAMINS
     Dosage: 2000 IU, QD
     Dates: start: 2000

REACTIONS (56)
  - Bone marrow failure [Unknown]
  - Rotator cuff repair [Unknown]
  - Lip erosion [Unknown]
  - Iron deficiency [Unknown]
  - Arthralgia [Unknown]
  - Low turnover osteopathy [Not Recovered/Not Resolved]
  - Anaemia [Unknown]
  - Chronic kidney disease [Not Recovered/Not Resolved]
  - Foot deformity [Unknown]
  - Osteoarthritis [Unknown]
  - Death [Fatal]
  - Undifferentiated connective tissue disease [Unknown]
  - Glucose tolerance impaired [Unknown]
  - Mixed connective tissue disease [Unknown]
  - Ankle operation [Unknown]
  - Dyslipidaemia [Unknown]
  - Interstitial lung disease [Unknown]
  - Osteoporosis [Not Recovered/Not Resolved]
  - Femur fracture [Not Recovered/Not Resolved]
  - Rotator cuff syndrome [Unknown]
  - Scleroderma [Unknown]
  - Arteriovenous malformation [Unknown]
  - Carbon monoxide diffusing capacity decreased [Unknown]
  - Gastrooesophageal reflux disease [Unknown]
  - Brachial plexus injury [Unknown]
  - Carotid bruit [Unknown]
  - Ankle operation [Unknown]
  - Medical device removal [Unknown]
  - Hypothyroidism [Unknown]
  - Joint crepitation [Unknown]
  - Stress fracture [Not Recovered/Not Resolved]
  - Arthrodesis [Unknown]
  - Sepsis [Unknown]
  - Vulval disorder [Unknown]
  - Dysplasia [Unknown]
  - Tongue haemorrhage [Unknown]
  - Muscular weakness [Unknown]
  - Barrett^s oesophagus [Unknown]
  - Polyarthritis [Unknown]
  - Osteoporosis [Unknown]
  - Sleep apnoea syndrome [Unknown]
  - Osteoarthritis [Not Recovered/Not Resolved]
  - Mucocutaneous ulceration [Unknown]
  - Ankle operation [Unknown]
  - Spinal fracture [Unknown]
  - Arthralgia [Not Recovered/Not Resolved]
  - Pathological fracture [Recovered/Resolved]
  - Intramedullary rod insertion [Unknown]
  - Systemic lupus erythematosus [Not Recovered/Not Resolved]
  - Sepsis [Unknown]
  - Tachycardia [Unknown]
  - Hypoxia [Unknown]
  - Synovitis [Unknown]
  - Poisoning [Unknown]
  - Diabetes mellitus [Unknown]
  - Osteoarthritis [Not Recovered/Not Resolved]

NARRATIVE: CASE EVENT DATE: 2006
